FAERS Safety Report 9095560 (Version 1)
Quarter: 2013Q1

REPORT INFORMATION
  Report Type: Spontaneous
  Country: GB (occurrence: None)
  Receive Date: 20130124
  Receipt Date: 20130124
  Transmission Date: 20140127
  Serious: Yes (Other)
  Sender: FDA-Public Use
  Company Number: 1556374

PATIENT
  Age: 45 Year
  Sex: Female
  Weight: 33.29 kg

DRUGS (4)
  1. CALCIUM FOLINATE [Suspect]
  2. IRINOTECAN HYDROCHLORIDE [Suspect]
  3. OXALIPLATIN [Suspect]
     Dosage: 130, UNIT
     Dates: start: 20061115, end: 20070404
  4. FLUOROURACIL [Suspect]

REACTIONS (4)
  - Neurotoxicity [None]
  - Neuropathy peripheral [None]
  - Areflexia [None]
  - Nausea [None]
